FAERS Safety Report 5129449-9 (Version None)
Quarter: 2006Q4

REPORT INFORMATION
  Report Type: 
  Country: None (occurrence: None)
  Receive Date: 20061018
  Receipt Date: 20060529
  Transmission Date: 20070319
  Serious: Yes (Hospitalization)
  Sender: FDA-Public Use
  Company Number: FR-BRISTOL-MYERS SQUIBB COMPANY-13398532

PATIENT
  Age: 75 Year
  Sex: Female

DRUGS (4)
  1. MODECATE [Suspect]
     Indication: AGITATION
     Route: 030
     Dates: start: 20060426, end: 20060426
  2. ARTANE [Suspect]
     Indication: AGITATION
     Route: 030
     Dates: start: 20060426, end: 20060426
  3. PROPRANOLOL [Concomitant]
     Indication: DEPRESSION
  4. ETHYL LOFLAZEPATE [Concomitant]
     Indication: DEPRESSION

REACTIONS (3)
  - DEHYDRATION [None]
  - DEPRESSED LEVEL OF CONSCIOUSNESS [None]
  - URINARY RETENTION [None]
